FAERS Safety Report 5945985-7 (Version None)
Quarter: 2008Q4

REPORT INFORMATION
  Report Type: 
  Country: None (occurrence: None)
  Receive Date: 20081107
  Receipt Date: 20081107
  Transmission Date: 20090506
  Serious: Yes (Other)
  Sender: FDA-Public Use
  Company Number: None

PATIENT
  Sex: Female
  Weight: 105.6881 kg

DRUGS (2)
  1. DEPAKOTE ER [Suspect]
     Indication: EPILEPSY
     Dosage: 1 TABLET T.I.D. PO
     Route: 048
     Dates: start: 20080901, end: 20081001
  2. DEPAKOTE [Suspect]
     Indication: EPILEPSY
     Dosage: 1 TABLET T.I.D. P.O. SEVERAL YEARS
     Route: 048

REACTIONS (3)
  - DRUG INEFFECTIVE [None]
  - INCREASED APPETITE [None]
  - INSOMNIA [None]
